FAERS Safety Report 5407357-3 (Version None)
Quarter: 2007Q3

REPORT INFORMATION
  Report Type: 
  Country: None (occurrence: None)
  Receive Date: 20070731
  Receipt Date: 20070723
  Transmission Date: 20080115
  Serious: Yes (Other)
  Sender: FDA-Public Use
  Company Number: 2007327453

PATIENT
  Age: 23 Year
  Sex: Male

DRUGS (2)
  1. MINOXIDIL [Suspect]
     Dosage: AMOUNT TWICE DAILY, TOPICAL
     Route: 061
     Dates: start: 20061201
  2. CORTISONE ACETATE [Suspect]
     Dates: start: 20061201

REACTIONS (1)
  - ARRHYTHMIA [None]
